FAERS Safety Report 4948210-9 (Version None)
Quarter: 2006Q1

REPORT INFORMATION
  Report Type: 
  Country: None (occurrence: None)
  Receive Date: 20060320
  Receipt Date: 20060301
  Transmission Date: 20060701
  Serious: Yes (Hospitalization, Other)
  Sender: FDA-Public Use
  Company Number: PHEH2006US02781

PATIENT
  Age: 73 Year
  Sex: Male

DRUGS (1)
  1. STARLIX [Suspect]
     Indication: DIABETES MELLITUS NON-INSULIN-DEPENDENT
     Dosage: 120 MG, TID
     Dates: start: 20030101

REACTIONS (9)
  - ASTHENIA [None]
  - BLOOD GLUCOSE INCREASED [None]
  - COUGH [None]
  - DRUG INEFFECTIVE [None]
  - GASTRIC LAVAGE [None]
  - GASTROINTESTINAL DISORDER [None]
  - HICCUPS [None]
  - PNEUMONIA [None]
  - PULMONARY CONGESTION [None]
